FAERS Safety Report 9839195 (Version 3)
Quarter: 2014Q1

REPORT INFORMATION
  Report Type: Spontaneous
  Country: KR (occurrence: KR)
  Receive Date: 20140123
  Receipt Date: 20140218
  Transmission Date: 20141002
  Serious: Yes (Death, Other)
  Sender: FDA-Public Use
  Company Number: KR-JHP PHARMACEUTICALS, LLC-JHP201300815

PATIENT
  Age: 73 Year
  Sex: Female

DRUGS (10)
  1. COLY-MYCIN M PARENTERAL [Suspect]
     Indication: PNEUMONIA BACTERIAL
     Dosage: 150 MG, DAILY
     Route: 055
  2. METHYLPREDNISOLONE [Suspect]
  3. ENOXAPARIN [Suspect]
  4. CEFTAZIDIME [Concomitant]
  5. VANCOMYCIN [Concomitant]
  6. LEVETIRACETAM [Concomitant]
  7. DILTIAZEM [Concomitant]
  8. AZELASTINE [Concomitant]
  9. HYDROXYZINE [Concomitant]
  10. ITOPRIDE [Concomitant]

REACTIONS (6)
  - Staphylococcal infection [Unknown]
  - Gastrointestinal haemorrhage [Fatal]
  - Pyrexia [Unknown]
  - Rash [Unknown]
  - Off label use [Unknown]
  - Treatment failure [Unknown]
